FAERS Safety Report 24593147 (Version 1)
Quarter: 2024Q4

REPORT INFORMATION
  Report Type: Spontaneous
  Country: US (occurrence: None)
  Receive Date: 20241107
  Receipt Date: 20241107
  Transmission Date: 20250114
  Serious: No
  Sender: Public
  Company Number: None

PATIENT
  Age: 71 Year
  Sex: Female
  Weight: 74.84 kg

DRUGS (1)
  1. ENBREL [Suspect]
     Active Substance: ETANERCEPT
     Indication: Psoriatic arthropathy
     Dosage: OTHER FREQUENCY : ONCEWEEKLYASDIRECTED ;?
     Dates: start: 202403

REACTIONS (4)
  - Transient ischaemic attack [None]
  - Pulmonary fibrosis [None]
  - Back pain [None]
  - Intentional dose omission [None]
